FAERS Safety Report 6737505-4 (Version None)
Quarter: 2010Q2

REPORT INFORMATION
  Report Type: 
  Country: None (occurrence: None)
  Receive Date: 20100524
  Receipt Date: 20100518
  Transmission Date: 20101027
  Serious: Yes (Death, Other)
  Sender: FDA-Public Use
  Company Number: JP-BAYER-200912635BYL

PATIENT
  Age: 73 Year
  Sex: Female
  Weight: 35 kg

DRUGS (12)
  1. NEXAVAR [Suspect]
     Indication: HEPATIC NEOPLASM MALIGNANT
     Dosage: TOTAL DAILY DOSE: 800 MG  UNIT DOSE: 200 MG
     Route: 048
     Dates: start: 20090723, end: 20090727
  2. BASEN OD [Concomitant]
     Dosage: UNIT DOSE: 0.2 MG
     Route: 048
  3. URSO 250 [Concomitant]
     Dosage: UNIT DOSE: 100 MG
     Route: 048
  4. GLAKAY [Concomitant]
     Dosage: UNIT DOSE: 15 MG
     Route: 048
  5. TAKEPRON [Concomitant]
     Dosage: UNIT DOSE: 30 MG
     Route: 048
  6. AMARYL [Concomitant]
     Dosage: UNIT DOSE: 1 MG
     Route: 048
  7. ALDACTONE [Concomitant]
     Dosage: UNIT DOSE: 25 MG
     Route: 048
  8. FERROMIA [Concomitant]
     Dosage: UNIT DOSE: 50 MG
     Route: 048
  9. THYRADIN S [Concomitant]
     Dosage: UNIT DOSE: 50 ?G
     Route: 048
     Dates: start: 20090729, end: 20090805
  10. THYRADIN S [Concomitant]
     Dosage: UNIT DOSE: 50 ?G
     Route: 048
     Dates: start: 20090805
  11. AMINOLEBAN [Concomitant]
     Dosage: UNIT DOSE: 200 ML
     Route: 042
     Dates: start: 20090721, end: 20090731
  12. GLYPHAGEN [Concomitant]
     Dosage: UNIT DOSE: 20 ML
     Route: 042

REACTIONS (4)
  - HEPATIC ENCEPHALOPATHY [None]
  - HEPATIC NEOPLASM MALIGNANT [None]
  - HYPOTHYROIDISM [None]
  - MALIGNANT NEOPLASM PROGRESSION [None]
